FAERS Safety Report 24163494 (Version 4)
Quarter: 2024Q4

REPORT INFORMATION
  Report Type: Report from Study
  Country: US (occurrence: US)
  Receive Date: 20240801
  Receipt Date: 20241105
  Transmission Date: 20250115
  Serious: Yes (Hospitalization, Other)
  Sender: JOHNSON AND JOHNSON
  Company Number: US-JNJFOC-20240443864

PATIENT

DRUGS (1)
  1. DARZALEX FASPRO [Suspect]
     Active Substance: DARATUMUMAB\HYALURONIDASE-FIHJ
     Indication: Plasma cell myeloma
     Route: 058
     Dates: start: 20240125, end: 20240314

REACTIONS (15)
  - Plasma cell myeloma [Unknown]
  - Pneumonia bacterial [Unknown]
  - Spinal cord neoplasm [Recovered/Resolved]
  - Femur fracture [Unknown]
  - COVID-19 [Unknown]
  - Humerus fracture [Unknown]
  - Joint dislocation [Unknown]
  - Skin mass [Unknown]
  - Fall [Unknown]
  - Cellulitis [Unknown]
  - Bone lesion [Not Recovered/Not Resolved]
  - Decubitus ulcer [Unknown]
  - Swelling [Recovering/Resolving]
  - Nausea [Recovered/Resolved]
  - Diarrhoea [Recovered/Resolved]

NARRATIVE: CASE EVENT DATE: 20240318
